FAERS Safety Report 6136728-5 (Version None)
Quarter: 2009Q1

REPORT INFORMATION
  Report Type: 
  Country: None (occurrence: None)
  Receive Date: 20090330
  Receipt Date: 20090327
  Transmission Date: 20090719
  Serious: Yes (Death, Hospitalization, Other)
  Sender: FDA-Public Use
  Company Number: PHHY2009GB03044

PATIENT
  Sex: Female

DRUGS (1)
  1. CLOZARIL [Suspect]
     Indication: SCHIZOPHRENIA
     Dosage: UNK
     Dates: start: 19981006

REACTIONS (5)
  - BACK PAIN [None]
  - DEATH [None]
  - FOOT FRACTURE [None]
  - GENERAL PHYSICAL HEALTH DETERIORATION [None]
  - SPINAL CORD NEOPLASM [None]
